FAERS Safety Report 4646851-X (Version None)
Quarter: 2005Q2

REPORT INFORMATION
  Report Type: 
  Country: None (occurrence: None)
  Receive Date: 20050331
  Receipt Date: 20050118
  Transmission Date: 20051028
  Serious: No
  Sender: FDA-Public Use
  Company Number: 05P-163-0287074-00

PATIENT
  Age: 43 Year
  Sex: Female
  Weight: 103 kg

DRUGS (7)
  1. HUMIRA [Suspect]
     Indication: RHEUMATOID ARTHRITIS
     Dosage: 40 MG, 1 IN 2 WK, SUBCUTANEOUS
     Route: 058
     Dates: start: 20040101
  2. METHOTREXATE SODIUM [Concomitant]
  3. BENFLEX [Concomitant]
  4. ALPRAZOLAM [Concomitant]
  5. FOLIC ACID [Concomitant]
  6. SERTRALINE HYDROCHLORIDE [Concomitant]
  7. RANITIDINE [Concomitant]

REACTIONS (1)
  - MIGRAINE [None]
